FAERS Safety Report 20936454 (Version 1)
Quarter: 2022Q2

REPORT INFORMATION
  Report Type: Other
  Country: IT (occurrence: None)
  Receive Date: 20220609
  Receipt Date: 20220609
  Transmission Date: 20220721
  Serious: Yes (Other)
  Sender: FDA-Public Use
  Company Number: IT-ROCHE-3097411

PATIENT
  Age: 52 Year

DRUGS (1)
  1. ALECTINIB [Suspect]
     Active Substance: ALECTINIB
     Indication: Lung adenocarcinoma
     Route: 065
     Dates: start: 20211115

REACTIONS (3)
  - Hyperbilirubinaemia [Recovering/Resolving]
  - Nausea [Unknown]
  - Abdominal discomfort [Unknown]
